FAERS Safety Report 5104355-4 (Version None)
Quarter: 2006Q3

REPORT INFORMATION
  Report Type: 
  Country: None (occurrence: None)
  Receive Date: 20060911
  Receipt Date: 20060911
  Transmission Date: 20061208
  Serious: Yes (Hospitalization)
  Sender: FDA-Public Use
  Company Number: None

PATIENT
  Age: 63 Year
  Sex: Male
  Weight: 77.1115 kg

DRUGS (1)
  1. SIMVASTATIN [Suspect]
     Indication: HYPERLIPIDAEMIA
     Dosage: 80  MG  ONCE DAILY  PO
     Route: 048
     Dates: start: 20060403, end: 20060606

REACTIONS (8)
  - ABDOMINAL PAIN LOWER [None]
  - AZOTAEMIA [None]
  - DIALYSIS [None]
  - DIARRHOEA [None]
  - HYPERKALAEMIA [None]
  - PELVIC PAIN [None]
  - RENAL FAILURE ACUTE [None]
  - RHABDOMYOLYSIS [None]
